FAERS Safety Report 4522848-5 (Version None)
Quarter: 2004Q4

REPORT INFORMATION
  Report Type: 
  Country: None (occurrence: None)
  Receive Date: 20041209
  Receipt Date: 20041203
  Transmission Date: 20050328
  Serious: Yes (Life-Threatening, Hospitalization)
  Sender: FDA-Public Use
  Company Number: US-MERCK-0412USA00552

PATIENT
  Age: 81 Year
  Sex: Male

DRUGS (7)
  1. VIOXX [Suspect]
     Route: 048
     Dates: start: 20030101, end: 20030101
  2. PLAVIX [Concomitant]
     Route: 065
  3. ALLEGRA [Concomitant]
     Route: 065
  4. BIAXIN [Concomitant]
     Route: 065
  5. ZITHROMAX [Concomitant]
     Route: 065
  6. LEVAQUIN [Concomitant]
     Route: 065
  7. TRAVATAN [Concomitant]
     Route: 065

REACTIONS (1)
  - CEREBROVASCULAR ACCIDENT [None]
